FAERS Safety Report 7076944-1 (Version None)
Quarter: 2010Q4

REPORT INFORMATION
  Report Type: 
  Country: None (occurrence: None)
  Receive Date: 20101101
  Receipt Date: 20101027
  Transmission Date: 20110411
  Serious: Yes (Life-Threatening, Hospitalization)
  Sender: FDA-Public Use
  Company Number: JP-NOVOPROD-316620

PATIENT
  Age: 72 Year
  Sex: Male
  Weight: 61 kg

DRUGS (6)
  1. VICTOZA [Suspect]
     Indication: TYPE 2 DIABETES MELLITUS
     Dosage: 0.3 MG, QD
     Route: 058
     Dates: start: 20101008
  2. AMARYL [Concomitant]
     Indication: DIABETES MELLITUS
     Dosage: 2 MG, QD
     Route: 048
     Dates: start: 20101008, end: 20101015
  3. ZYLORIC                            /00003301/ [Concomitant]
     Dosage: 100 MG, QD
     Route: 048
     Dates: start: 20101008, end: 20101015
  4. TRICOR [Concomitant]
     Dosage: 100 MG, QD
     Route: 048
     Dates: start: 20101008, end: 20101015
  5. GASTER D [Concomitant]
     Dosage: 10 MG, QD
     Route: 048
     Dates: start: 20101008, end: 20101015
  6. LOSARTAN POTASSIUM AND HYDROCHLOROTHIAZIDE [Concomitant]
     Dosage: UNK
     Route: 048
     Dates: start: 20101008, end: 20101015

REACTIONS (1)
  - DIABETIC KETOACIDOSIS [None]
